FAERS Safety Report 8283376-7 (Version None)
Quarter: 2012Q2

REPORT INFORMATION
  Report Type: 
  Country: None (occurrence: None)
  Receive Date: 20120413
  Receipt Date: 20120404
  Transmission Date: 20120825
  Serious: Yes (Other)
  Sender: FDA-Public Use
  Company Number: SE-MILLENNIUM PHARMACEUTICALS, INC.-2012-01744

PATIENT

DRUGS (9)
  1. IMOVANE [Concomitant]
  2. OXYCONTIN [Concomitant]
  3. VELCADE [Suspect]
     Indication: MULTIPLE MYELOMA
     Dosage: UNK
     Route: 065
     Dates: start: 20111201
  4. ALVEDON [Concomitant]
  5. OXYCODONE HCL [Concomitant]
  6. DEXAMETHASONE [Concomitant]
  7. CYCLOPHOSPHAMIDE [Suspect]
     Indication: MULTIPLE MYELOMA
     Dosage: UNK
     Route: 065
     Dates: start: 20111201
  8. PRIMPERAN                          /00041901/ [Concomitant]
  9. ONDANSETRON [Concomitant]

REACTIONS (1)
  - CEREBRAL INFARCTION [None]
